FAERS Safety Report 18977599 (Version 2)
Quarter: 2021Q1

REPORT INFORMATION
  Report Type: Spontaneous
  Country: DE (occurrence: DE)
  Receive Date: 20210306
  Receipt Date: 20210319
  Transmission Date: 20210420
  Serious: Yes (Other)
  Sender: FDA-Public Use
  Company Number: NVSC2021DE047464

PATIENT
  Age: 82 Year
  Sex: Female
  Weight: 78 kg

DRUGS (3)
  1. PREDNISOLONE. [Suspect]
     Active Substance: PREDNISOLONE
     Dosage: 7 MG, QD (DOSE REDUCED)
     Route: 065
  2. PREDNISOLONE. [Suspect]
     Active Substance: PREDNISOLONE
     Indication: RHEUMATIC DISORDER
     Dosage: 10 MG
     Route: 065
     Dates: start: 202010
  3. AMLODIPINE [Suspect]
     Active Substance: AMLODIPINE BESYLATE
     Indication: HYPERTENSION
     Dosage: 1 DF
     Route: 065
     Dates: start: 202010

REACTIONS (2)
  - Weight increased [Not Recovered/Not Resolved]
  - Sudden onset of sleep [Not Recovered/Not Resolved]

NARRATIVE: CASE EVENT DATE: 202012
